FAERS Safety Report 8375137-5 (Version None)
Quarter: 2012Q2

REPORT INFORMATION
  Report Type: 
  Country: None (occurrence: None)
  Receive Date: 20120521
  Receipt Date: 20120515
  Transmission Date: 20120825
  Serious: Yes (Hospitalization)
  Sender: FDA-Public Use
  Company Number: AU-ELI_LILLY_AND_COMPANY-AU201205005425

PATIENT
  Age: 49 Year
  Sex: Female

DRUGS (2)
  1. BYETTA [Suspect]
     Dosage: UNK UNK, UNKNOWN
     Dates: start: 20111102
  2. INSULIN [Concomitant]

REACTIONS (3)
  - KETOACIDOSIS [None]
  - OFF LABEL USE [None]
  - BLOOD GLUCOSE INCREASED [None]
